FAERS Safety Report 24132338 (Version 1)
Quarter: 2024Q3

REPORT INFORMATION
  Report Type: Spontaneous
  Country: JP (occurrence: JP)
  Receive Date: 20240724
  Receipt Date: 20240724
  Transmission Date: 20241016
  Serious: Yes (Death)
  Sender: ELI LILLY AND CO
  Company Number: JP-ELI_LILLY_AND_COMPANY-JP202407001334

PATIENT
  Age: 2 Week
  Sex: Female

DRUGS (8)
  1. HUMULIN R [Suspect]
     Active Substance: INSULIN HUMAN
     Indication: Hyperglycaemia
     Dosage: UNK
     Route: 041
     Dates: start: 20230621
  2. BETAMETHASONE [Suspect]
     Active Substance: BETAMETHASONE\BETAMETHASONE DIPROPIONATE
     Indication: Chronic respiratory disease
     Dosage: UNK UNK, BID
     Route: 041
     Dates: start: 20230705
  3. DOBUTAMINE [Suspect]
     Active Substance: DOBUTAMINE HYDROCHLORIDE
     Indication: Product used for unknown indication
     Dosage: UNK
     Route: 041
     Dates: start: 20230617
  4. HYDROCORTISONE [Suspect]
     Active Substance: HYDROCORTISONE\HYDROCORTISONE ACETATE
     Indication: Chronic respiratory disease
     Dosage: UNK
     Route: 041
     Dates: start: 20230626
  5. INDOMETHACIN [Concomitant]
     Active Substance: INDOMETHACIN
     Indication: Patent ductus arteriosus
     Dosage: 0.1 MG/KG, DAILY
     Route: 041
     Dates: start: 20230617, end: 20230621
  6. INDOMETHACIN [Concomitant]
     Active Substance: INDOMETHACIN
     Dosage: 0.2 MG/KG, OTHER
     Route: 041
     Dates: start: 20230617, end: 20230621
  7. FENTANYL [Concomitant]
     Active Substance: FENTANYL\FENTANYL CITRATE
     Dosage: UNK
     Route: 041
     Dates: start: 20230617, end: 20230712
  8. DOPAMINE [Concomitant]
     Active Substance: DOPAMINE HYDROCHLORIDE
     Dosage: UNK
     Route: 041
     Dates: start: 20230617

REACTIONS (2)
  - Cardiac hypertrophy [Fatal]
  - Circulatory collapse [Fatal]

NARRATIVE: CASE EVENT DATE: 20230630
